FAERS Safety Report 5035697-9 (Version None)
Quarter: 2006Q2

REPORT INFORMATION
  Report Type: 
  Country: None (occurrence: None)
  Receive Date: 20060622
  Receipt Date: 20060606
  Transmission Date: 20061013
  Serious: Yes (Other)
  Sender: FDA-Public Use
  Company Number: 8017325

PATIENT
  Age: 45 Year
  Sex: Female

DRUGS (5)
  1. KEPPRA [Suspect]
     Dosage: ONCE PO
     Route: 049
     Dates: start: 20060606, end: 20060606
  2. CIPRALEX /01588501/ [Suspect]
     Dosage: ONCE PO
     Route: 048
     Dates: start: 20060606, end: 20060606
  3. LYRICA [Suspect]
     Dosage: ONCE PO
     Route: 048
     Dates: start: 20060606, end: 20060606
  4. MIRTAZAPINE [Suspect]
     Dosage: ONCE PO
     Route: 048
     Dates: start: 20060606, end: 20060606
  5. NEXIUM /01479302/ [Suspect]
     Dosage: ONCE PO
     Route: 048
     Dates: start: 20060606, end: 20060606

REACTIONS (3)
  - COMA [None]
  - CONVULSION [None]
  - SUICIDE ATTEMPT [None]
